FAERS Safety Report 15626182 (Version 1)
Quarter: 2018Q4

REPORT INFORMATION
  Report Type: Spontaneous
  Country: CA (occurrence: CA)
  Receive Date: 20181116
  Receipt Date: 20181116
  Transmission Date: 20190205
  Serious: Yes (Death, Other)
  Sender: FDA-Public Use
  Company Number: CA-BIOCOMPATIBLES UK LTD-2018BTG01818

PATIENT
  Age: 44 Year
  Sex: Male

DRUGS (2)
  1. AMIODARONE [Concomitant]
     Active Substance: AMIODARONE
     Indication: VENTRICULAR TACHYARRHYTHMIA
     Route: 042
  2. DIGIFAB [Suspect]
     Active Substance: OVINE DIGOXIN IMMUNE FAB
     Indication: TOXICITY TO VARIOUS AGENTS

REACTIONS (3)
  - Off label use [Unknown]
  - Brain injury [Fatal]
  - Drug ineffective for unapproved indication [Unknown]
